FAERS Safety Report 16849402 (Version 1)
Quarter: 2019Q3

REPORT INFORMATION
  Report Type: Spontaneous
  Country: US (occurrence: US)
  Receive Date: 20190925
  Receipt Date: 20190925
  Transmission Date: 20191005
  Serious: Yes (Life-Threatening, Hospitalization)
  Sender: FDA-Public Use
  Company Number: US-SCIEGEN PHARMACEUTICALS INC-2019SCILIT00266

PATIENT
  Age: 37 Year
  Sex: Male

DRUGS (6)
  1. QUETIAPINE. [Suspect]
     Active Substance: QUETIAPINE
  2. PROPRANOLOL [Suspect]
     Active Substance: PROPRANOLOL HYDROCHLORIDE
  3. DEXTROSE. [Interacting]
     Active Substance: DEXTROSE
  4. INSULIN [Interacting]
     Active Substance: INSULIN NOS
  5. SOMATOSTATIN [Interacting]
     Active Substance: SOMATOSTATIN
  6. POTASSIUM [Interacting]
     Active Substance: POTASSIUM

REACTIONS (3)
  - Cardiogenic shock [Recovering/Resolving]
  - Intentional overdose [None]
  - Hypoglycaemia [Recovered/Resolved]
